FAERS Safety Report 23441833 (Version 2)
Quarter: 2024Q1

REPORT INFORMATION
  Report Type: Spontaneous
  Country: DE (occurrence: None)
  Receive Date: 20240125
  Receipt Date: 20240313
  Transmission Date: 20240410
  Serious: Yes (Hospitalization)
  Sender: FDA-Public Use
  Company Number: DE-ROCHE-3497178

PATIENT
  Age: 63 Year
  Sex: Female

DRUGS (1)
  1. OCREVUS [Suspect]
     Active Substance: OCRELIZUMAB
     Indication: Primary progressive multiple sclerosis
     Dosage: 8:30 AM-12:10 (INCLUDING PREMEDICATION) ON 24/OCT/2023
     Route: 042
     Dates: start: 20180307

REACTIONS (12)
  - Leukopenia [Recovered/Resolved]
  - Agranulocytosis [Recovered/Resolved]
  - Red blood cell count decreased [Unknown]
  - Mean cell haemoglobin concentration increased [Unknown]
  - B-lymphocyte count decreased [Unknown]
  - CD4 lymphocytes increased [Unknown]
  - T-lymphocyte count decreased [Unknown]
  - Blood immunoglobulin G decreased [Unknown]
  - Monocyte count increased [Unknown]
  - C-reactive protein increased [Unknown]
  - Human chorionic gonadotropin increased [Unknown]
  - CD4/CD8 ratio increased [Unknown]

NARRATIVE: CASE EVENT DATE: 20240116
